FAERS Safety Report 13497804 (Version 1)
Quarter: 2017Q2

REPORT INFORMATION
  Report Type: Report from Study
  Country: US (occurrence: US)
  Receive Date: 20170428
  Receipt Date: 20170428
  Transmission Date: 20170830
  Serious: Yes (Hospitalization)
  Sender: FDA-Public Use
  Company Number: US-BIOGEN-2017BI00391756

PATIENT
  Age: 43 Year
  Sex: Female

DRUGS (1)
  1. TYSABRI [Suspect]
     Active Substance: NATALIZUMAB
     Indication: MULTIPLE SCLEROSIS
     Dosage: INFUSED OVER 1 HOUR
     Route: 042
     Dates: start: 20100524

REACTIONS (1)
  - Neck surgery [Recovered/Resolved]

NARRATIVE: CASE EVENT DATE: 201608
